FAERS Safety Report 14913876 (Version 2)
Quarter: 2018Q3

REPORT INFORMATION
  Report Type: Spontaneous
  Country: US (occurrence: US)
  Receive Date: 20180518
  Receipt Date: 20180712
  Transmission Date: 20181010
  Serious: No
  Sender: FDA-Public Use
  Company Number: US-ASTRAZENECA-2018SE54063

PATIENT
  Sex: Male
  Weight: 111.6 kg

DRUGS (6)
  1. THYROID MEDICATION [Concomitant]
     Active Substance: UNSPECIFIED INGREDIENT
     Indication: THYROID DISORDER
  2. WATER PILL [Concomitant]
     Active Substance: UNSPECIFIED INGREDIENT
     Indication: SWELLING
  3. LEVEMIR [Concomitant]
     Active Substance: INSULIN DETEMIR
     Indication: TYPE 2 DIABETES MELLITUS
  4. TUJEO [Concomitant]
     Indication: TYPE 2 DIABETES MELLITUS
  5. BYDUREON BCISE [Suspect]
     Active Substance: EXENATIDE
     Indication: TYPE 2 DIABETES MELLITUS
     Route: 065
  6. HUMALOG [Concomitant]
     Active Substance: INSULIN LISPRO
     Indication: TYPE 2 DIABETES MELLITUS

REACTIONS (2)
  - Device malfunction [Unknown]
  - Arthritis [Unknown]
